FAERS Safety Report 9925753 (Version 1)
Quarter: 2014Q1

REPORT INFORMATION
  Report Type: Spontaneous
  Country: GB (occurrence: GB)
  Receive Date: 20140226
  Receipt Date: 20140226
  Transmission Date: 20141002
  Serious: Yes (Disabling)
  Sender: FDA-Public Use
  Company Number: GB-TEVA-464573ISR

PATIENT
  Age: 78 Year
  Sex: Male
  Weight: 88.9 kg

DRUGS (7)
  1. RAMIPRIL [Suspect]
     Indication: HYPERTENSION
     Dosage: 1.25 MILLIGRAM DAILY;
     Route: 048
     Dates: start: 20140129, end: 20140211
  2. AMLODIPINE [Concomitant]
  3. ASPIRIN [Concomitant]
  4. ATORVASTATIN [Concomitant]
  5. LANSOPRAZOLE [Concomitant]
  6. SERETIDE [Concomitant]
  7. SILDENAFIL [Concomitant]

REACTIONS (4)
  - Back pain [Not Recovered/Not Resolved]
  - Neck pain [Not Recovered/Not Resolved]
  - Pain in extremity [Not Recovered/Not Resolved]
  - Hypoaesthesia [Not Recovered/Not Resolved]
